FAERS Safety Report 5186492-1 (Version None)
Quarter: 2006Q4

REPORT INFORMATION
  Report Type: 
  Country: None (occurrence: None)
  Receive Date: 20061213
  Receipt Date: 20061128
  Transmission Date: 20070319
  Serious: Yes (Other)
  Sender: FDA-Public Use
  Company Number: 233620

PATIENT
  Age: 83 Year
  Sex: Female

DRUGS (1)
  1. AVASTIN [Suspect]
     Indication: CHOROIDAL NEOVASCULARISATION
     Dosage: 1.25 MG, INTRAVITREAL
     Dates: start: 20051126, end: 20051126

REACTIONS (4)
  - BLINDNESS [None]
  - CONDITION AGGRAVATED [None]
  - DETACHMENT OF RETINAL PIGMENT EPITHELIUM [None]
  - VITREOUS HAEMORRHAGE [None]
